FAERS Safety Report 7860731-8 (Version None)
Quarter: 2011Q4

REPORT INFORMATION
  Report Type: 
  Country: None (occurrence: None)
  Receive Date: 20111027
  Receipt Date: 20111012
  Transmission Date: 20120403
  Serious: Yes (Hospitalization)
  Sender: FDA-Public Use
  Company Number: US-ELI_LILLY_AND_COMPANY-US201110004058

PATIENT
  Age: 49 Year
  Sex: Male

DRUGS (4)
  1. PROTON PUMP INHIBITORS [Concomitant]
     Dosage: UNK, UNKNOWN
  2. ANTIBIOTICS FOR TOPICAL USE [Concomitant]
     Dosage: UNK, UNKNOWN
  3. XIGRIS [Suspect]
     Indication: SEPSIS
     Dosage: UNK
     Dates: start: 20111011
  4. ANTIBIOTICS [Concomitant]
     Dosage: UNK, UNKNOWN
     Route: 042

REACTIONS (1)
  - MYOCARDIAL INFARCTION [None]
